FAERS Safety Report 5939516-5 (Version None)
Quarter: 2008Q4

REPORT INFORMATION
  Report Type: 
  Country: None (occurrence: None)
  Receive Date: 20081030
  Receipt Date: 20081020
  Transmission Date: 20090506
  Serious: Yes (Hospitalization)
  Sender: FDA-Public Use
  Company Number: 2008-03934

PATIENT
  Age: 47 Year
  Sex: Male
  Weight: 89.3 kg

DRUGS (9)
  1. VELCADE [Suspect]
     Indication: MANTLE CELL LYMPHOMA
     Dosage: 1.3 MG/M2
     Dates: start: 20080806, end: 20080930
  2. RITUXIMAB(RITUXIMAB) INJECTION, 375MG/M2 [Suspect]
     Indication: MANTLE CELL LYMPHOMA
     Dosage: 375 MG/M2
     Dates: start: 20080805, end: 20080926
  3. CYCLOPHOSPHAMIDE [Suspect]
     Indication: MANTLE CELL LYMPHOMA
     Dosage: 300 MG/M2
     Dates: start: 20080806, end: 20080929
  4. MESNEX [Suspect]
     Indication: MANTLE CELL LYMPHOMA
     Dosage: 600 MG
     Dates: start: 20080806, end: 20080929
  5. VINCRISTINE [Suspect]
     Indication: MANTLE CELL LYMPHOMA
     Dosage: 1.4 MG/M2
     Dates: start: 20080809, end: 20081006
  6. DOXORUBICIN HCL [Suspect]
     Indication: MANTLE CELL LYMPHOMA
     Dosage: 50 MG/M2
     Dates: start: 20080809, end: 20080930
  7. METHOTREXATE [Suspect]
     Indication: MANTLE CELL LYMPHOMA
     Dosage: 200 MG/M2
     Dates: start: 20080906, end: 20080906
  8. CYTARABINE [Suspect]
     Indication: MANTLE CELL LYMPHOMA
     Dosage: 6 G
     Dates: start: 20080907, end: 20080907
  9. ANCEF [Concomitant]

REACTIONS (7)
  - CLOSTRIDIAL INFECTION [None]
  - CULTURE STOOL POSITIVE [None]
  - ERYTHEMA [None]
  - FEBRILE NEUTROPENIA [None]
  - INFECTION [None]
  - OEDEMA PERIPHERAL [None]
  - PYREXIA [None]
